FAERS Safety Report 14056279 (Version 1)
Quarter: 2017Q4

REPORT INFORMATION
  Report Type: Spontaneous
  Country: GB (occurrence: GB)
  Receive Date: 20171006
  Receipt Date: 20171006
  Transmission Date: 20180321
  Serious: Yes (Life-Threatening)
  Sender: FDA-Public Use
  Company Number: GB-JNJFOC-20171004066

PATIENT
  Age: 82 Year
  Sex: Female

DRUGS (1)
  1. XARELTO [Suspect]
     Active Substance: RIVAROXABAN
     Indication: ATRIAL FIBRILLATION
     Route: 048
     Dates: start: 20170912, end: 20170913

REACTIONS (4)
  - Swelling face [Recovering/Resolving]
  - Ear swelling [Recovering/Resolving]
  - Swollen tongue [Recovering/Resolving]
  - Pain in jaw [Recovering/Resolving]

NARRATIVE: CASE EVENT DATE: 20170912
